FAERS Safety Report 21498518 (Version 1)
Quarter: 2022Q4

REPORT INFORMATION
  Report Type: Spontaneous
  Country: US (occurrence: None)
  Receive Date: 20221022
  Receipt Date: 20221022
  Transmission Date: 20230113
  Serious: No
  Sender: FDA-Public Use
  Company Number: None

PATIENT
  Age: 66 Year
  Sex: Male
  Weight: 81 kg

DRUGS (12)
  1. EVUSHELD [Suspect]
     Active Substance: CILGAVIMAB\TIXAGEVIMAB
  2. ACYCLOVIR [Concomitant]
     Active Substance: ACYCLOVIR
  3. ASPIRIN [Concomitant]
     Active Substance: ASPIRIN
  4. DARZALEX [Concomitant]
     Active Substance: DARATUMUMAB
  5. DECADRON [Concomitant]
     Active Substance: DEXAMETHASONE
  6. ZOMETA [Concomitant]
     Active Substance: ZOLEDRONIC ACID
  7. REVLIMID [Concomitant]
     Active Substance: LENALIDOMIDE
  8. PERCOCET [Concomitant]
     Active Substance: ACETAMINOPHEN\OXYCODONE HYDROCHLORIDE
  9. VITAMIN D [Concomitant]
     Active Substance: VITAMIN D NOS
  10. VITAMIN B [Concomitant]
     Active Substance: VITAMIN B
  11. CALCIUM [Concomitant]
     Active Substance: CALCIUM
  12. HERBALS\TURMERIC [Concomitant]
     Active Substance: HERBALS\TURMERIC

REACTIONS (5)
  - Asthenia [None]
  - Pain [None]
  - Gait disturbance [None]
  - Discomfort [None]
  - SARS-CoV-2 test positive [None]

NARRATIVE: CASE EVENT DATE: 20220804
